FAERS Safety Report 12152990 (Version 1)
Quarter: 2016Q1

REPORT INFORMATION
  Report Type: Spontaneous
  Country: JP (occurrence: JP)
  Receive Date: 20160305
  Receipt Date: 20160305
  Transmission Date: 20160526
  Serious: Yes (Other)
  Sender: FDA-Public Use
  Company Number: JP-AMGEN-JPNSP2016023877

PATIENT

DRUGS (1)
  1. VECTIBIX [Suspect]
     Active Substance: PANITUMUMAB
     Indication: COLON CANCER
     Dosage: UNK
     Route: 041

REACTIONS (7)
  - Ileus [Unknown]
  - Neoplasm progression [Unknown]
  - Diarrhoea [Unknown]
  - Skin disorder [Unknown]
  - Haematotoxicity [Unknown]
  - Performance status decreased [Unknown]
  - Infusion related reaction [Unknown]
